FAERS Safety Report 5132019-X (Version None)
Quarter: 2006Q4

REPORT INFORMATION
  Report Type: 
  Country: None (occurrence: None)
  Receive Date: 20061017
  Receipt Date: 20061004
  Transmission Date: 20070319
  Serious: Yes (Hospitalization)
  Sender: FDA-Public Use
  Company Number: 2006BI014199

PATIENT
  Age: 49 Year
  Sex: Female

DRUGS (1)
  1. AVONEX [Suspect]
     Indication: MULTIPLE SCLEROSIS
     Dosage: 30 UG; QW; IM
     Route: 030
     Dates: start: 20040101

REACTIONS (7)
  - AORTIC OCCLUSION [None]
  - BLISTER [None]
  - FOOT AMPUTATION [None]
  - OEDEMA PERIPHERAL [None]
  - PILONIDAL CYST [None]
  - POOR PERIPHERAL CIRCULATION [None]
  - SKIN ULCER [None]
